FAERS Safety Report 25348904 (Version 2)
Quarter: 2025Q4

REPORT INFORMATION
  Report Type: Spontaneous
  Country: US (occurrence: US)
  Receive Date: 20250522
  Receipt Date: 20251223
  Transmission Date: 20260117
  Serious: Yes (Other)
  Sender: COOPERSURGICAL
  Company Number: US-COOPERSURGICAL, INC.-2025CPS004044

PATIENT
  Age: 32 Year
  Sex: Female
  Weight: 69.388 kg

DRUGS (1)
  1. PARAGARD T 380A [Suspect]
     Active Substance: COPPER
     Dosage: UNK
     Route: 015
     Dates: start: 20070101, end: 20130325

REACTIONS (15)
  - Surgery [Recovered/Resolved]
  - Device breakage [Recovered/Resolved]
  - Foreign body in reproductive tract [Recovered/Resolved]
  - Complication of device removal [Recovered/Resolved]
  - Embedded device [Recovered/Resolved]
  - Procedural haemorrhage [Recovered/Resolved]
  - Emotional distress [Not Recovered/Not Resolved]
  - Procedural pain [Recovered/Resolved]
  - Coital bleeding [Unknown]
  - Heavy menstrual bleeding [Not Recovered/Not Resolved]
  - Muscle spasms [Not Recovered/Not Resolved]
  - Menstrual disorder [Not Recovered/Not Resolved]
  - Abnormal uterine bleeding [Not Recovered/Not Resolved]
  - Dysmenorrhoea [Unknown]
  - Bacterial vaginosis [Unknown]

NARRATIVE: CASE EVENT DATE: 20120101
